FAERS Safety Report 8546053-0 (Version None)
Quarter: 2012Q3

REPORT INFORMATION
  Report Type: 
  Country: None (occurrence: None)
  Receive Date: 20120727
  Receipt Date: 20111205
  Transmission Date: 20120928
  Serious: No
  Sender: FDA-Public Use
  Company Number: US-ASTRAZENECA-2011SE73679

PATIENT
  Age: 47 Year
  Sex: Female
  Weight: 90.7 kg

DRUGS (6)
  1. VALIUM [Concomitant]
  2. PROZAC [Concomitant]
  3. SEROQUEL [Suspect]
     Indication: BIPOLAR I DISORDER
     Dosage: 200-400 MG, HS
     Route: 048
  4. ATENOLOL [Concomitant]
     Indication: HEART RATE IRREGULAR
  5. ADVAIR DISKUS 100/50 [Concomitant]
     Indication: LUNG DISORDER
  6. LISINOPRIL [Concomitant]
     Indication: BLOOD PRESSURE

REACTIONS (3)
  - FEELING ABNORMAL [None]
  - DRUG DOSE OMISSION [None]
  - MENTAL DISORDER [None]
